FAERS Safety Report 7704240-5 (Version None)
Quarter: 2011Q3

REPORT INFORMATION
  Report Type: 
  Country: None (occurrence: None)
  Receive Date: 20110823
  Receipt Date: 20110816
  Transmission Date: 20111222
  Serious: Yes (Other)
  Sender: FDA-Public Use
  Company Number: US-JNJFOC-20110807882

PATIENT
  Sex: Male
  Weight: 58.06 kg

DRUGS (2)
  1. LEVAQUIN [Suspect]
     Indication: PNEUMONIA
     Route: 042
     Dates: start: 20110808, end: 20110801
  2. LEVAQUIN [Suspect]
     Route: 048
     Dates: start: 20110810, end: 20110812

REACTIONS (3)
  - ABASIA [None]
  - OEDEMA PERIPHERAL [None]
  - PAIN IN EXTREMITY [None]
